FAERS Safety Report 26064368 (Version 2)
Quarter: 2025Q4

REPORT INFORMATION
  Report Type: Report from Study
  Country: US (occurrence: US)
  Receive Date: 20251119
  Receipt Date: 20251123
  Transmission Date: 20260117
  Serious: No
  Sender: SANOFI AVENTIS
  Company Number: US-SA-2025SA345143

PATIENT
  Age: 62 Year
  Sex: Female

DRUGS (2)
  1. TEPLIZUMAB-MZWV [Suspect]
     Active Substance: TEPLIZUMAB-MZWV
     Indication: Diabetes prophylaxis
     Dosage: 129.35 UG, QD
     Route: 042
     Dates: start: 20251112, end: 20251113
  2. TEPLIZUMAB-MZWV [Suspect]
     Active Substance: TEPLIZUMAB-MZWV
     Dosage: 129.35 UG, QD
     Route: 042
     Dates: start: 20251114

REACTIONS (5)
  - Malaise [Unknown]
  - Chills [Recovered/Resolved]
  - Pyrexia [Unknown]
  - Nausea [Unknown]
  - Headache [Unknown]

NARRATIVE: CASE EVENT DATE: 20251101
